FAERS Safety Report 6087559-6 (Version None)
Quarter: 2009Q1

REPORT INFORMATION
  Report Type: 
  Country: None (occurrence: None)
  Receive Date: 20090223
  Receipt Date: 20090211
  Transmission Date: 20090719
  Serious: Yes (Other)
  Sender: FDA-Public Use
  Company Number: PHHY2009US00543

PATIENT
  Sex: Male

DRUGS (17)
  1. EXJADE [Suspect]
     Indication: MYELODYSPLASTIC SYNDROME
     Dosage: 500 MG,2 QD
     Route: 048
     Dates: start: 20081001
  2. EXJADE [Suspect]
     Dosage: 1000 MG, QD
     Route: 048
     Dates: start: 20081230
  3. TOPROL-XL [Concomitant]
     Dosage: 100 MG, QD
  4. ASPIRIN [Concomitant]
     Dosage: 81 MG, QD
  5. CRESTOR [Concomitant]
     Dosage: 10 MG, QD
  6. PEPCID [Concomitant]
     Dosage: 20 MG, BID
  7. CLARITIN [Concomitant]
     Dosage: 10 MG, QD
  8. PIROXICAM [Concomitant]
     Dosage: 20 MG, QD
  9. MECLIZINE [Concomitant]
     Indication: DIZZINESS
     Dosage: 25 MG, Q8H
  10. NITROSTAT [Concomitant]
     Dosage: 0.4 MG SL
  11. PLAVIX [Concomitant]
     Dosage: 75 MG, QD
  12. CENTRUM SILVER [Concomitant]
  13. ALLOPURINOL [Concomitant]
     Dosage: 300 MG, QD
  14. COMPAZINE [Concomitant]
     Indication: NAUSEA
     Dosage: 10 MG 1-2Q 4H PRN
  15. ZOFRAN [Concomitant]
     Indication: NAUSEA
     Dosage: 8 MG, Q8H
  16. HYDREA [Concomitant]
     Dosage: 500 MG 4 QD
  17. ULTRAM [Concomitant]
     Indication: PAIN
     Dosage: 50 MG 1-2 Q 6H PRN

REACTIONS (11)
  - ABDOMINAL PAIN [None]
  - COUGH [None]
  - DEHYDRATION [None]
  - DIARRHOEA [None]
  - DYSPNOEA [None]
  - FATIGUE [None]
  - NAUSEA [None]
  - PYREXIA [None]
  - SPLENOMEGALY [None]
  - VIRAL INFECTION [None]
  - WHEEZING [None]
